FAERS Safety Report 5631506-5 (Version None)
Quarter: 2008Q1

REPORT INFORMATION
  Report Type: 
  Country: None (occurrence: None)
  Receive Date: 20080215
  Receipt Date: 20080206
  Transmission Date: 20080703
  Serious: Yes (Other)
  Sender: FDA-Public Use
  Company Number: MC200800073

PATIENT
  Sex: Male

DRUGS (3)
  1. ANGIOMAX [Suspect]
     Indication: PERCUTANEOUS CORONARY INTERVENTION
     Dosage: 1 MG/KG, BOLUS, IV BOLUS
     Route: 040
     Dates: start: 20080206, end: 20080206
  2. ANGIOMAX [Concomitant]
     Dosage: 1.75 MG/KG, INTRAVENOUS
     Route: 042
     Dates: start: 20080206, end: 20080206
  3. PLAVIX [Concomitant]

REACTIONS (3)
  - CEREBRAL HAEMORRHAGE [None]
  - HAEMORRHAGE INTRACRANIAL [None]
  - UNRESPONSIVE TO STIMULI [None]
